FAERS Safety Report 8559522-4 (Version None)
Quarter: 2012Q3

REPORT INFORMATION
  Report Type: 
  Country: None (occurrence: None)
  Receive Date: 20120802
  Receipt Date: 20120725
  Transmission Date: 20120928
  Serious: Yes (Hospitalization, Other)
  Sender: FDA-Public Use
  Company Number: US-BAYER-2012-032651

PATIENT
  Age: 33 Year
  Sex: Female
  Weight: 89.342 kg

DRUGS (10)
  1. VITAMIN D [Concomitant]
     Dosage: 100 IU, DAILY
     Dates: start: 20090429
  2. FACTIVE [Concomitant]
     Indication: BACK PAIN
     Dosage: UNK
     Dates: start: 20090527
  3. YAZ [Suspect]
     Indication: CONTRACEPTION
     Dosage: UNK
     Dates: start: 20080814, end: 20090701
  4. AMRIX [Concomitant]
     Indication: BACK PAIN
     Dosage: UNK
     Dates: start: 20090527
  5. PHENTERMINE [Concomitant]
     Dosage: 37.5 MG, DAILY
     Route: 048
     Dates: start: 20090429
  6. MULTI-VITAMIN [Concomitant]
     Dosage: UNK
     Route: 048
     Dates: start: 20090429
  7. ALLI [Concomitant]
     Route: 048
  8. XYZAL [Concomitant]
     Dosage: 5 MG, UNK
     Route: 048
  9. ASTELIN [Concomitant]
     Dosage: UNK
     Route: 045
     Dates: start: 20090429
  10. NEXIUM [Concomitant]
     Dosage: 40 MG, DAILY
     Route: 048
     Dates: start: 20090429

REACTIONS (9)
  - PAIN [None]
  - CHOLECYSTITIS CHRONIC [None]
  - PANCREATITIS CHRONIC [None]
  - NAUSEA [None]
  - CHOLELITHIASIS [None]
  - BILIARY TRACT DISORDER [None]
  - INJURY [None]
  - ABDOMINAL PAIN [None]
  - VOMITING [None]
